FAERS Safety Report 19197867 (Version 2)
Quarter: 2021Q2

REPORT INFORMATION
  Report Type: Spontaneous
  Country: US (occurrence: US)
  Receive Date: 20210429
  Receipt Date: 20210512
  Transmission Date: 20210717
  Serious: No
  Sender: FDA-Public Use
  Company Number: US-ALLERGAN-2115636US

PATIENT
  Sex: Male

DRUGS (13)
  1. DALVANCE [Suspect]
     Active Substance: DALBAVANCIN
     Dosage: 1500 MG, SINGLE
     Route: 042
     Dates: start: 20210303, end: 20210303
  2. ACETAMINOPHEN. [Concomitant]
     Active Substance: ACETAMINOPHEN
     Dosage: UNK UNK, PRN
  3. ASPIRIN [ACETYLSALICYLIC ACID] [Concomitant]
     Active Substance: ASPIRIN
     Dosage: 81 MG, QD
  4. WARFARIN [Concomitant]
     Active Substance: WARFARIN
  5. DALVANCE [Suspect]
     Active Substance: DALBAVANCIN
     Dosage: 1500 MG, SINGLE
     Route: 042
     Dates: start: 20210203, end: 20210203
  6. LASIX [Concomitant]
     Active Substance: FUROSEMIDE
     Dosage: 20 MG, QD
  7. MULTIVITAMIN [Concomitant]
     Active Substance: VITAMINS
     Dosage: 1 DF, QD
  8. MAGNESIUM OXIDE. [Concomitant]
     Active Substance: MAGNESIUM OXIDE
     Dosage: 400 MG, QD
  9. DALVANCE [Suspect]
     Active Substance: DALBAVANCIN
     Indication: VASCULAR DEVICE INFECTION
     Dosage: 1500 MG, SINGLE
     Route: 042
     Dates: start: 20210331, end: 20210331
  10. AMLODIPINE [Concomitant]
     Active Substance: AMLODIPINE BESYLATE
     Dosage: 7.5 MG, QD
  11. FINASTERIDE. [Concomitant]
     Active Substance: FINASTERIDE
     Dosage: 5 MG, QD
  12. POTASSIUM CHLORIDE. [Concomitant]
     Active Substance: POTASSIUM CHLORIDE
     Dosage: 20 ?L, QD
  13. FAMOTIDINE. [Concomitant]
     Active Substance: FAMOTIDINE
     Dosage: 40 MG, QHS

REACTIONS (5)
  - Hyperhidrosis [Unknown]
  - Vomiting [Unknown]
  - Diarrhoea [Recovered/Resolved]
  - Liver function test increased [Recovered/Resolved]
  - Product quality issue [Unknown]

NARRATIVE: CASE EVENT DATE: 20210331
